FAERS Safety Report 10927837 (Version 1)
Quarter: 2015Q1

REPORT INFORMATION
  Report Type: Report from Study
  Country: US (occurrence: US)
  Receive Date: 20150319
  Receipt Date: 20150319
  Transmission Date: 20150721
  Serious: Yes (Other)
  Sender: FDA-Public Use
  Company Number: US-ALEXION PHARMACEUTICALS INC-A201500886

PATIENT

DRUGS (2)
  1. PENICILLIN                         /00000901/ [Concomitant]
     Active Substance: PENICILLIN
     Indication: PROPHYLAXIS
     Dosage: UNK
     Route: 065
  2. SOLIRIS [Suspect]
     Active Substance: ECULIZUMAB
     Indication: PRODUCT USED FOR UNKNOWN INDICATION
     Dosage: UNK
     Route: 042

REACTIONS (5)
  - Nasopharyngitis [Recovered/Resolved]
  - Nasal congestion [Recovered/Resolved]
  - Arteriovenous fistula site complication [Unknown]
  - Cough [Recovered/Resolved]
  - Renal impairment [Recovering/Resolving]

NARRATIVE: CASE EVENT DATE: 20150222
